FAERS Safety Report 5739883-1 (Version None)
Quarter: 2008Q2

REPORT INFORMATION
  Report Type: 
  Country: None (occurrence: None)
  Receive Date: 20080513
  Receipt Date: 20080513
  Transmission Date: 20081010
  Serious: Yes (Hospitalization)
  Sender: FDA-Public Use
  Company Number: None

PATIENT
  Age: 53 Year
  Sex: Male
  Weight: 90 kg

DRUGS (17)
  1. AVASTIN [Suspect]
     Indication: NON-SMALL CELL LUNG CANCER
     Dosage: 7.5 MG/KG Q 4 WEEKS IV
     Route: 042
     Dates: start: 20080123, end: 20080411
  2. DOCETAXEL [Concomitant]
  3. CARBOPLATIN [Concomitant]
  4. NEULASTA [Concomitant]
  5. ATIVAN [Concomitant]
  6. LEXAPRO [Concomitant]
  7. CHLORPROMAZINE [Concomitant]
  8. MIACALCIN [Concomitant]
  9. CALCIUM CARBONATE/VIT D [Concomitant]
  10. VIT B12 [Concomitant]
  11. NIACIN [Concomitant]
  12. LOVASTATIN [Concomitant]
  13. REGLAN [Concomitant]
  14. PROTONIX [Concomitant]
  15. DEXAMETHASONE TAB [Concomitant]
  16. ASPIRIN [Concomitant]
  17. KEPPRA [Concomitant]

REACTIONS (3)
  - DEPRESSED LEVEL OF CONSCIOUSNESS [None]
  - LOBAR PNEUMONIA [None]
  - PANCREATITIS [None]
